FAERS Safety Report 8440147-6 (Version None)
Quarter: 2012Q2

REPORT INFORMATION
  Report Type: 
  Country: None (occurrence: None)
  Receive Date: 20120615
  Receipt Date: 20120606
  Transmission Date: 20120825
  Serious: Yes (Hospitalization)
  Sender: FDA-Public Use
  Company Number: DE-ACTELION-A-US2010-42565

PATIENT

DRUGS (16)
  1. ALDACTONE [Concomitant]
  2. FLUTICASONE PROPIONATE/SALMETEROL [Concomitant]
  3. INSPRA [Concomitant]
  4. VENTAVIS [Suspect]
     Indication: PULMONARY ARTERIAL HYPERTENSION
     Dosage: 5 UG, Q4H
     Route: 055
     Dates: start: 20090723
  5. MOVIPREP [Concomitant]
  6. ALLOPURINOL [Concomitant]
  7. RIOCIGUAT [Concomitant]
  8. MARCUMAR [Concomitant]
  9. TORSEMIDE [Concomitant]
  10. FENISTIL [Concomitant]
  11. OXYGEN [Concomitant]
  12. PARACODIN BITARTRATE TAB [Concomitant]
  13. ENOXAPARIN SODIUM [Concomitant]
  14. ACETYLCYSTEINE [Concomitant]
  15. PANTOPRAZOLE [Concomitant]
  16. VOLIBRIS [Concomitant]

REACTIONS (21)
  - PULMONARY HYPERTENSION [None]
  - OXYGEN SATURATION DECREASED [None]
  - SINUSITIS [None]
  - HAEMOPTYSIS [None]
  - NAUSEA [None]
  - PYOGENIC GRANULOMA [None]
  - COUGH [None]
  - FLUID OVERLOAD [None]
  - ECZEMA ASTEATOTIC [None]
  - SYNCOPE [None]
  - HYPERVENTILATION [None]
  - GASTROENTERITIS [None]
  - EXERCISE TOLERANCE DECREASED [None]
  - RENAL FAILURE [None]
  - CARDIAC FAILURE [None]
  - CONJUNCTIVITIS BACTERIAL [None]
  - DIARRHOEA [None]
  - CONDITION AGGRAVATED [None]
  - LUNG TRANSPLANT [None]
  - RESPIRATORY FAILURE [None]
  - ERYTHEMA [None]
